FAERS Safety Report 14562050 (Version 1)
Quarter: 2018Q1

REPORT INFORMATION
  Report Type: Spontaneous
  Country: US (occurrence: US)
  Receive Date: 20180222
  Receipt Date: 20180222
  Transmission Date: 20180509
  Serious: Yes (Other)
  Sender: FDA-Public Use
  Company Number: US-BEH-2018088020

PATIENT
  Age: 25 Year
  Sex: Male

DRUGS (1)
  1. HIZENTRA [Suspect]
     Active Substance: HUMAN IMMUNOGLOBULIN G
     Indication: SELECTIVE IGM IMMUNODEFICIENCY
     Dosage: 10 G, QW
     Route: 058
     Dates: start: 20180125

REACTIONS (1)
  - Infusion site bruising [Unknown]

NARRATIVE: CASE EVENT DATE: 20180205
